FAERS Safety Report 6378452-X (Version None)
Quarter: 2009Q3

REPORT INFORMATION
  Report Type: 
  Country: None (occurrence: None)
  Receive Date: 20090927
  Receipt Date: 20090918
  Transmission Date: 20100115
  Serious: Yes (Hospitalization)
  Sender: FDA-Public Use
  Company Number: US-ELI_LILLY_AND_COMPANY-US200909004347

PATIENT
  Sex: Female

DRUGS (4)
  1. HUMALOG [Suspect]
  2. PREDNISONE [Concomitant]
  3. AMAREL [Concomitant]
  4. NOVOLOG [Concomitant]

REACTIONS (10)
  - BLOOD GLUCOSE INCREASED [None]
  - BURN OESOPHAGEAL [None]
  - BURNING SENSATION [None]
  - HERNIA PAIN [None]
  - OESOPHAGEAL INJURY [None]
  - OESOPHAGEAL PAIN [None]
  - PANCREATIC CYST [None]
  - PANCREATIC DISORDER [None]
  - PROCEDURAL COMPLICATION [None]
  - VISUAL IMPAIRMENT [None]
